FAERS Safety Report 19351310 (Version 1)
Quarter: 2021Q2

REPORT INFORMATION
  Report Type: Spontaneous
  Country: JP (occurrence: JP)
  Receive Date: 20210531
  Receipt Date: 20210531
  Transmission Date: 20210717
  Serious: Yes (Other)
  Sender: FDA-Public Use
  Company Number: JP-PHARMATHEN-GPV2021PHT052089

PATIENT
  Age: 36 Year
  Sex: Female

DRUGS (1)
  1. DIMETHYL FUMARATE [Suspect]
     Active Substance: DIMETHYL FUMARATE
     Indication: RELAPSING-REMITTING MULTIPLE SCLEROSIS

REACTIONS (5)
  - Multiple sclerosis relapse [Unknown]
  - Drug-induced liver injury [Recovering/Resolving]
  - Eosinophil count increased [Recovering/Resolving]
  - Primary biliary cholangitis [Unknown]
  - Hepatic enzyme increased [Recovering/Resolving]
